FAERS Safety Report 11722759 (Version 1)
Quarter: 2015Q4

REPORT INFORMATION
  Report Type: Spontaneous
  Country: US (occurrence: US)
  Receive Date: 20151111
  Receipt Date: 20151111
  Transmission Date: 20160304
  Serious: No
  Sender: FDA-Public Use
  Company Number: US-009507513-1511USA005806

PATIENT
  Sex: Female

DRUGS (1)
  1. JANUVIA [Suspect]
     Active Substance: SITAGLIPTIN PHOSPHATE
     Route: 048

REACTIONS (7)
  - Panic attack [Unknown]
  - Dyspnoea [Unknown]
  - Heart rate increased [Unknown]
  - Malaise [Unknown]
  - Wrong technique in product usage process [Unknown]
  - Altered state of consciousness [Unknown]
  - Anxiety [Unknown]
